FAERS Safety Report 4496221-2 (Version None)
Quarter: 2004Q3

REPORT INFORMATION
  Report Type: 
  Country: None (occurrence: None)
  Receive Date: 20040921
  Receipt Date: 20031202
  Transmission Date: 20050211
  Serious: Yes (Death)
  Sender: FDA-Public Use
  Company Number: 163-20785-03120077

PATIENT
  Age: 70 Year
  Sex: Male

DRUGS (5)
  1. THALOMID [Suspect]
     Indication: MALIGNANT PERITONEAL NEOPLASM
     Dosage: SEE IMAGE
     Route: 048
     Dates: start: 20030905, end: 20030920
  2. THALOMID [Suspect]
     Indication: MALIGNANT PERITONEAL NEOPLASM
     Dosage: SEE IMAGE
     Route: 048
     Dates: start: 20030920, end: 20030923
  3. THALOMID [Suspect]
     Indication: MALIGNANT PERITONEAL NEOPLASM
     Dosage: SEE IMAGE
     Route: 048
     Dates: start: 20030925, end: 20030929
  4. . [Concomitant]
  5. . [Concomitant]

REACTIONS (1)
  - DEATH [None]
